FAERS Safety Report 12467090 (Version 1)
Quarter: 2016Q2

REPORT INFORMATION
  Report Type: Spontaneous
  Country: US (occurrence: None)
  Receive Date: 20160614
  Receipt Date: 20160614
  Transmission Date: 20160815
  Serious: Yes (Other)
  Sender: FDA-Public Use
  Company Number: None

PATIENT
  Age: 47 Year
  Sex: Female
  Weight: 74.84 kg

DRUGS (11)
  1. FISH OIL [Concomitant]
     Active Substance: FISH OIL
  2. MIRVASO [Suspect]
     Active Substance: BRIMONIDINE TARTRATE
     Indication: ROSACEA
     Dosage: 30 30 IN THE MORNING APPLIED TO A SURFACE, USUALLY THE SKIN
     Dates: start: 20141231, end: 20160613
  3. METFORMIN [Concomitant]
     Active Substance: METFORMIN HYDROCHLORIDE
  4. LISINOPRIL. [Concomitant]
     Active Substance: LISINOPRIL
  5. INDEROL [Concomitant]
  6. CLONIDINE. [Concomitant]
     Active Substance: CLONIDINE
  7. HCTZ [Concomitant]
     Active Substance: HYDROCHLOROTHIAZIDE
  8. SPIRONOLACTONE. [Concomitant]
     Active Substance: SPIRONOLACTONE
  9. CRANBERRY. [Concomitant]
     Active Substance: CRANBERRY
  10. CINNAMON. [Concomitant]
     Active Substance: CINNAMON
  11. RED RICE [Concomitant]

REACTIONS (5)
  - Rosacea [None]
  - Blister rupture [None]
  - Rebound effect [None]
  - Flushing [None]
  - Nasal pruritus [None]

NARRATIVE: CASE EVENT DATE: 20160606
